FAERS Safety Report 9671709 (Version 1)
Quarter: 2013Q4

REPORT INFORMATION
  Report Type: Spontaneous
  Country: US (occurrence: None)
  Receive Date: 20131105
  Receipt Date: 20131105
  Transmission Date: 20140711
  Serious: Yes (Hospitalization)
  Sender: FDA-Public Use
  Company Number: None

PATIENT
  Age: 67 Year
  Sex: Female
  Weight: 87.3 kg

DRUGS (11)
  1. LISINOPRIL [Suspect]
     Indication: CARDIAC FAILURE CONGESTIVE
     Route: 048
     Dates: end: 20110925
  2. ADVAIR [Concomitant]
  3. ALBUTEROL [Concomitant]
  4. IPRATROPIUM [Concomitant]
  5. BUMETANIDE [Concomitant]
  6. DOCUSATE [Concomitant]
  7. CALCIUM ACETATE [Concomitant]
  8. SEVELAMER [Concomitant]
  9. ASPIRIN [Concomitant]
  10. METOPROLOL [Concomitant]
  11. OMEPRAZOLE [Concomitant]

REACTIONS (6)
  - Dyspnoea [None]
  - Dysphagia [None]
  - Lip swelling [None]
  - Swollen tongue [None]
  - Local swelling [None]
  - Angioedema [None]
